FAERS Safety Report 6381704-0 (Version None)
Quarter: 2009Q3

REPORT INFORMATION
  Report Type: 
  Country: None (occurrence: None)
  Receive Date: 20090930
  Receipt Date: 20090917
  Transmission Date: 20100115
  Serious: Yes (Other)
  Sender: FDA-Public Use
  Company Number: PHHY2009IN40311

PATIENT

DRUGS (1)
  1. ACLASTA [Suspect]
     Dosage: 5MG/ 100ML

REACTIONS (1)
  - OSTEONECROSIS [None]
